FAERS Safety Report 9652436 (Version 5)
Quarter: 2014Q1

REPORT INFORMATION
  Report Type: Spontaneous
  Country: JP (occurrence: JP)
  Receive Date: 20131029
  Receipt Date: 20140306
  Transmission Date: 20141002
  Serious: Yes (Life-Threatening, Hospitalization, Disabling)
  Sender: FDA-Public Use
  Company Number: JP-ACTELION-A-CH2013-90550

PATIENT
  Age: 21 Year
  Sex: Male
  Weight: 50 kg

DRUGS (10)
  1. VELETRI [Suspect]
     Indication: PULMONARY ARTERIAL HYPERTENSION
     Dosage: 26.9 NG/KG, PER MIN
     Route: 042
     Dates: start: 20130815, end: 20130916
  2. VELETRI [Suspect]
     Dosage: 38.8 NG/KG, PER MIN
     Route: 042
     Dates: start: 20130917, end: 20131014
  3. VELETRI [Suspect]
     Dosage: 41.8 NG/KG, PER MIN
     Route: 042
     Dates: start: 20131015, end: 20131028
  4. DOPAMINE HYDROCHLORIDE [Concomitant]
  5. MILRINONE [Concomitant]
  6. DOBUTAMINE HYDROCHLORIDE [Concomitant]
  7. CARBAZOCHROME SODIUM SULFONATE [Concomitant]
  8. TRANEXAMIC ACID [Concomitant]
  9. SILDENAFIL CITRATE [Concomitant]
  10. OXYGEN [Concomitant]

REACTIONS (10)
  - Right ventricular failure [Recovered/Resolved]
  - Concomitant disease aggravated [Not Recovered/Not Resolved]
  - Device occlusion [Recovered/Resolved]
  - Product colour issue [Recovered/Resolved]
  - Product quality issue [Recovered/Resolved]
  - No adverse event [Recovered/Resolved]
  - Platelet count decreased [Recovered/Resolved]
  - Anaemia [Recovered/Resolved]
  - Red blood cell count decreased [Recovered/Resolved]
  - Haemoglobin decreased [Recovered/Resolved]
